FAERS Safety Report 8320733-4 (Version None)
Quarter: 2012Q2

REPORT INFORMATION
  Report Type: 
  Country: None (occurrence: None)
  Receive Date: 20120430
  Receipt Date: 20120418
  Transmission Date: 20120825
  Serious: Yes (Hospitalization)
  Sender: FDA-Public Use
  Company Number: US-ELI_LILLY_AND_COMPANY-US201203007919

PATIENT
  Sex: Male

DRUGS (1)
  1. FORTEO [Suspect]
     Indication: OSTEOPOROSIS
     Dosage: 20 UG, QD
     Dates: start: 20120321

REACTIONS (6)
  - PAIN IN EXTREMITY [None]
  - COMPRESSION FRACTURE [None]
  - HOSPITALISATION [None]
  - GAIT DISTURBANCE [None]
  - DISCOMFORT [None]
  - BACK PAIN [None]
